FAERS Safety Report 6399529-9 (Version None)
Quarter: 2009Q4

REPORT INFORMATION
  Report Type: 
  Country: None (occurrence: None)
  Receive Date: 20091014
  Receipt Date: 20091007
  Transmission Date: 20100525
  Serious: Yes (Hospitalization)
  Sender: FDA-Public Use
  Company Number: JP-BAYER-200710703BYL

PATIENT
  Age: 80 Year
  Sex: Male
  Weight: 65 kg

DRUGS (19)
  1. BAY43-9006 [Suspect]
     Indication: HEPATIC NEOPLASM MALIGNANT
     Dosage: TOTAL DAILY DOSE: 400 MG  UNIT DOSE: 400 MG
     Route: 048
     Dates: start: 20070816, end: 20070927
  2. BAY43-9006 [Suspect]
     Dosage: TOTAL DAILY DOSE: 800 MG  UNIT DOSE: 400 MG
     Route: 048
     Dates: start: 20070719, end: 20070802
  3. AMARYL [Concomitant]
     Indication: DIABETES MELLITUS
     Dosage: TOTAL DAILY DOSE: 3 MG  UNIT DOSE: 3 MG
     Route: 048
     Dates: start: 20070819, end: 20071001
  4. PURSENNID [Concomitant]
     Indication: CONSTIPATION
     Route: 048
     Dates: start: 20070619
  5. URSO 250 [Concomitant]
     Indication: CHOLELITHIASIS
     Dosage: TOTAL DAILY DOSE: 600 MG  UNIT DOSE: 100 MG
     Route: 048
     Dates: start: 20070819
  6. LASIX [Concomitant]
     Indication: ASCITES
     Dosage: TOTAL DAILY DOSE: 20 MG  UNIT DOSE: 20 MG
     Route: 048
     Dates: start: 20070619
  7. ALDACTONE [Concomitant]
     Indication: ASCITES
     Dosage: TOTAL DAILY DOSE: 25 MG  UNIT DOSE: 25 MG
     Route: 048
     Dates: start: 20070619
  8. NORVASC [Concomitant]
     Indication: HYPERTENSION
     Dosage: TOTAL DAILY DOSE: 5 MG  UNIT DOSE: 5 MG
     Route: 048
     Dates: start: 20070619
  9. GASPORT [Concomitant]
     Indication: GASTRIC ULCER
     Dosage: TOTAL DAILY DOSE: 40 MG  UNIT DOSE: 20 MG
     Route: 048
     Dates: start: 20070619, end: 20070729
  10. GEFANIL [Concomitant]
     Indication: GASTRIC ULCER
     Dosage: TOTAL DAILY DOSE: 300 MG  UNIT DOSE: 100 MG
     Route: 048
     Dates: start: 20070619
  11. SANCOBA [Concomitant]
     Indication: CATARACT
     Route: 031
     Dates: start: 20070619
  12. SHAKUYAKU-KANZO-TO [Concomitant]
     Indication: MUSCLE SPASMS
     Route: 048
     Dates: start: 20070619
  13. GASTER D [Concomitant]
     Indication: GASTRIC ULCER
     Dosage: TOTAL DAILY DOSE: 40 MG  UNIT DOSE: 20 MG
     Route: 048
     Dates: start: 20070730
  14. GARASONE [Concomitant]
     Indication: SKIN REACTION
     Route: 061
     Dates: start: 20070802
  15. KERATINAMIN [Concomitant]
     Indication: SKIN REACTION
     Route: 061
     Dates: start: 20070802
  16. ZYLORIC [Concomitant]
     Indication: RENAL IMPAIRMENT
     Dosage: TOTAL DAILY DOSE: 100 MG  UNIT DOSE: 100 MG
     Route: 048
     Dates: start: 20070802
  17. SOLITA-T NO.1 [Concomitant]
     Indication: RENAL IMPAIRMENT
     Route: 042
     Dates: start: 20070712
  18. BICARBONATED RINGER'S SOLUTION [Concomitant]
     Indication: RENAL IMPAIRMENT
     Dosage: UNIT DOSE: 500 ML
     Route: 011
     Dates: start: 20070619
  19. ISOTONIC SODIUM CHLORIDE SOLUTION [Concomitant]
     Indication: RENAL IMPAIRMENT
     Dosage: TOTAL DAILY DOSE: 500 ML  UNIT DOSE: 500 ML
     Route: 042
     Dates: start: 20071002

REACTIONS (4)
  - BLOOD AMYLASE INCREASED [None]
  - BLOOD TRYPSIN INCREASED [None]
  - DIABETES MELLITUS [None]
  - LIPASE INCREASED [None]
